FAERS Safety Report 11253528 (Version 2)
Quarter: 2015Q3

REPORT INFORMATION
  Report Type: Report from Study
  Country: CN (occurrence: CN)
  Receive Date: 20150709
  Receipt Date: 20150710
  Transmission Date: 20151125
  Serious: Yes (Other)
  Sender: FDA-Public Use
  Company Number: CN-ACCORD-032066

PATIENT
  Age: 57 Year
  Sex: Male

DRUGS (1)
  1. ALLOPURINOL/ALLOPURINOL SODIUM [Suspect]
     Active Substance: ALLOPURINOL SODIUM
     Indication: GOUTY ARTHRITIS
     Dosage: UNCLEAR DOSE

REACTIONS (2)
  - Drug reaction with eosinophilia and systemic symptoms [Recovering/Resolving]
  - Drug reaction with eosinophilia and systemic symptoms [None]
